FAERS Safety Report 4911320-6 (Version None)
Quarter: 2006Q1

REPORT INFORMATION
  Report Type: 
  Country: None (occurrence: None)
  Receive Date: 20060113
  Receipt Date: 20051109
  Transmission Date: 20060701
  Serious: No
  Sender: FDA-Public Use
  Company Number: 2005SP003911

PATIENT
  Age: 65 Year
  Sex: Male
  Weight: 99.7913 kg

DRUGS (6)
  1. LUNESTA [Suspect]
     Indication: INSOMNIA
     Dosage: 2 MG;HS; ORAL
     Route: 048
     Dates: start: 20050901, end: 20050901
  2. LUNESTA [Suspect]
     Indication: RESTLESS LEGS SYNDROME
     Dosage: 2 MG;HS; ORAL
     Route: 048
     Dates: start: 20050901, end: 20050901
  3. LUNESTA [Suspect]
     Indication: INSOMNIA
     Dosage: 2 MG;HS; ORAL
     Route: 048
     Dates: start: 20051201
  4. LUNESTA [Suspect]
     Indication: RESTLESS LEGS SYNDROME
     Dosage: 2 MG;HS; ORAL
     Route: 048
     Dates: start: 20051201
  5. REQUIP [Concomitant]
  6. TRAZADONE [Concomitant]

REACTIONS (2)
  - INSOMNIA [None]
  - NERVOUSNESS [None]
